FAERS Safety Report 18685240 (Version 1)
Quarter: 2020Q4

REPORT INFORMATION
  Report Type: Spontaneous
  Country: CA (occurrence: CA)
  Receive Date: 20201230
  Receipt Date: 20201230
  Transmission Date: 20210114
  Serious: Yes (Other)
  Sender: FDA-Public Use
  Company Number: CA-PFIZER INC-2020512211

PATIENT
  Age: 23 Year
  Sex: Female

DRUGS (3)
  1. ESTRADIOL. [Suspect]
     Active Substance: ESTRADIOL
     Dosage: 5 MG, 1X/DAY
     Dates: start: 20191202
  2. ESTRADIOL. [Suspect]
     Active Substance: ESTRADIOL
     Indication: GENDER REASSIGNMENT THERAPY
     Dosage: 2 MG, 1X/DAY
     Dates: start: 20190202
  3. ESTRADIOL. [Suspect]
     Active Substance: ESTRADIOL
     Dosage: 4 MG, 1X/DAY
     Dates: start: 20190919

REACTIONS (1)
  - Pulmonary function test decreased [Recovering/Resolving]
